FAERS Safety Report 17186406 (Version 3)
Quarter: 2020Q1

REPORT INFORMATION
  Report Type: Spontaneous
  Country: US (occurrence: US)
  Receive Date: 20191220
  Receipt Date: 20200117
  Transmission Date: 20200409
  Serious: Yes (Hospitalization, Other)
  Sender: FDA-Public Use
  Company Number: US-PFIZER INC-2019549233

PATIENT
  Age: 74 Year
  Sex: Female
  Weight: 67 kg

DRUGS (1)
  1. IBRANCE [Suspect]
     Active Substance: PALBOCICLIB
     Indication: BREAST CANCER METASTATIC
     Dosage: 125 MG, CYCLIC (DAILYX21 DAYS, EVERY 28 DAYS)
     Route: 048
     Dates: start: 20191206

REACTIONS (11)
  - Anxiety [Unknown]
  - Decreased appetite [Unknown]
  - Dizziness [Unknown]
  - Productive cough [Recovered/Resolved]
  - Candida infection [Unknown]
  - Hypokalaemia [Unknown]
  - Ageusia [Unknown]
  - Syncope [Unknown]
  - Pneumonia [Unknown]
  - Asthenia [Unknown]
  - Dehydration [Recovering/Resolving]

NARRATIVE: CASE EVENT DATE: 2019
